FAERS Safety Report 13551229 (Version 2)
Quarter: 2017Q2

REPORT INFORMATION
  Report Type: Report from Study
  Country: AR (occurrence: AR)
  Receive Date: 20170516
  Receipt Date: 20170525
  Transmission Date: 20170830
  Serious: Yes (Death, Other)
  Sender: FDA-Public Use
  Company Number: AR-SEATTLE GENETICS-2017SGN01201

PATIENT
  Age: 74 Year
  Sex: Female

DRUGS (1)
  1. BRENTUXIMAB VEDOTIN [Suspect]
     Active Substance: BRENTUXIMAB VEDOTIN
     Indication: HODGKIN^S DISEASE
     Dosage: 130 MG, UNK
     Route: 042
     Dates: start: 201611

REACTIONS (1)
  - Metastases to central nervous system [Fatal]

NARRATIVE: CASE EVENT DATE: 20161220
